FAERS Safety Report 19473900 (Version 1)
Quarter: 2021Q2

REPORT INFORMATION
  Report Type: Spontaneous
  Country: US (occurrence: US)
  Receive Date: 20210629
  Receipt Date: 20210629
  Transmission Date: 20210717
  Serious: No
  Sender: FDA-Public Use
  Company Number: US-GLAXOSMITHKLINE-2020279392

PATIENT
  Sex: Male
  Weight: 119.75 kg

DRUGS (2)
  1. BABY ASPIRIN [Concomitant]
     Active Substance: ASPIRIN
     Dosage: UNK
  2. ADVIL [Suspect]
     Active Substance: IBUPROFEN
     Indication: BACK PAIN
     Dosage: UNK, DAILY(ANYWHERE FROM 2?3 TABLETS, DAILY AT NIGHT, BY MOUTH)
     Route: 048

REACTIONS (1)
  - Extra dose administered [Unknown]
